FAERS Safety Report 4952371-5 (Version None)
Quarter: 2006Q1

REPORT INFORMATION
  Report Type: 
  Country: None (occurrence: None)
  Receive Date: 20060320
  Receipt Date: 20060310
  Transmission Date: 20060701
  Serious: No
  Sender: FDA-Public Use
  Company Number: 06H-163-0306136-00

PATIENT
  Age: 67 Year
  Sex: Female

DRUGS (1)
  1. PHENYTOIN [Suspect]
     Indication: CONVULSION PROPHYLAXIS

REACTIONS (4)
  - CARDIAC FAILURE CONGESTIVE [None]
  - DRUG HYPERSENSITIVITY [None]
  - MYOCARDITIS [None]
  - ORGAN FAILURE [None]
